FAERS Safety Report 10480744 (Version 6)
Quarter: 2017Q3

REPORT INFORMATION
  Report Type: Report from Study
  Country: DE (occurrence: DE)
  Receive Date: 20140929
  Receipt Date: 20170821
  Transmission Date: 20171127
  Serious: Yes (Hospitalization)
  Sender: FDA-Public Use
  Company Number: DE-ROCHE-1466096

PATIENT
  Age: 78 Year
  Sex: Male
  Weight: 85 kg

DRUGS (22)
  1. DELMUNO [Concomitant]
     Active Substance: FELODIPINE
     Route: 048
     Dates: start: 20140506, end: 20140905
  2. PREDNISOLONE. [Concomitant]
     Active Substance: PREDNISOLONE
     Route: 042
     Dates: start: 20140512, end: 20141002
  3. RANITIC [Concomitant]
     Active Substance: RANITIDINE HYDROCHLORIDE
     Indication: PROPHYLAXIS
     Route: 042
     Dates: start: 20140513, end: 20140513
  4. COTRIM FORTE [Concomitant]
     Active Substance: SULFAMETHOXAZOLE\TRIMETHOPRIM
     Indication: PROPHYLAXIS
     Route: 048
     Dates: start: 20140512, end: 20140910
  5. PANTOZOL [Concomitant]
     Active Substance: PANTOPRAZOLE SODIUM
     Indication: PROPHYLAXIS
     Route: 048
     Dates: start: 20140527
  6. MOXONIDIN [Concomitant]
     Active Substance: MOXONIDINE
     Route: 048
     Dates: start: 20140506
  7. PREDNISOLONE. [Concomitant]
     Active Substance: PREDNISOLONE
     Route: 042
     Dates: start: 20140513, end: 20140513
  8. DUROGESIC [Concomitant]
     Active Substance: FENTANYL
     Route: 058
     Dates: start: 20140527
  9. ASPIRIN. [Concomitant]
     Active Substance: ASPIRIN
     Route: 048
     Dates: start: 20140506
  10. BENDAMUSTINE [Suspect]
     Active Substance: BENDAMUSTINE
     Indication: CHRONIC LYMPHOCYTIC LEUKAEMIA
     Dosage: FREQUENCY AS PER PROTOCOL: ON DAY 1 AND 2 OF EACH CYCLE.?DATE OF LAST DOSE PRIOR TO SAELE : 03/SEP/2
     Route: 042
     Dates: start: 20140512
  11. BETAISODONA [Concomitant]
     Active Substance: POVIDONE-IODINE
     Route: 061
     Dates: start: 20141023, end: 20141023
  12. DELMUNO [Concomitant]
     Active Substance: FELODIPINE
     Route: 048
     Dates: start: 20140911
  13. FENISTIL (GERMANY) [Concomitant]
     Indication: PROPHYLAXIS
     Route: 042
     Dates: start: 20140512, end: 20141002
  14. FENISTIL (GERMANY) [Concomitant]
     Route: 042
     Dates: start: 20140513, end: 20140513
  15. PARACETAMOL [Concomitant]
     Active Substance: ACETAMINOPHEN
     Indication: PROPHYLAXIS
     Route: 048
     Dates: start: 20140512, end: 20141002
  16. CEFUROXIME. [Concomitant]
     Active Substance: CEFUROXIME
     Route: 048
     Dates: start: 20150313, end: 20150313
  17. PRAVASTATIN. [Concomitant]
     Active Substance: PRAVASTATIN
     Route: 048
     Dates: start: 20140506
  18. OBINUTUZUMAB. [Suspect]
     Active Substance: OBINUTUZUMAB
     Indication: CHRONIC LYMPHOCYTIC LEUKAEMIA
     Dosage: FREQUENCY AS PER PROTOCOL: CYCLE 1 SPLIT DOSE ON DAY 1 AND 2 AND ON DAY 1 FOR CYCLE 2-6. ?DATE OF LA
     Route: 042
     Dates: start: 20140512
  19. IBUPROFEN. [Concomitant]
     Active Substance: IBUPROFEN
     Route: 048
     Dates: start: 20140506, end: 20140916
  20. ONDANSETRON [Concomitant]
     Active Substance: ONDANSETRON
     Indication: PROPHYLAXIS
     Route: 042
     Dates: start: 20140512, end: 20141002
  21. ONDANSETRON [Concomitant]
     Active Substance: ONDANSETRON
     Route: 042
     Dates: start: 20140905, end: 20140907
  22. DEXPANTHENOL. [Concomitant]
     Active Substance: DEXPANTHENOL
     Route: 048
     Dates: start: 20140522

REACTIONS (1)
  - Hypertensive nephropathy [Recovered/Resolved]

NARRATIVE: CASE EVENT DATE: 20140905
